FAERS Safety Report 9890261 (Version 2)
Quarter: 2014Q1

REPORT INFORMATION
  Report Type: Spontaneous
  Country: BR (occurrence: BR)
  Receive Date: 20140212
  Receipt Date: 20140212
  Transmission Date: 20141002
  Serious: Yes (Death, Hospitalization)
  Sender: FDA-Public Use
  Company Number: BR-AMGEN-BRASP2013056709

PATIENT
  Age: 71 Year
  Sex: Female
  Weight: 40 kg

DRUGS (2)
  1. ENBREL [Suspect]
     Indication: RHEUMATOID ARTHRITIS
     Dosage: 50 MG, ONCE WEEKLY
     Route: 058
  2. ARAVA [Concomitant]
     Dosage: 20 MG, QD
     Route: 048

REACTIONS (4)
  - Cardiac arrest [Fatal]
  - Blood potassium decreased [Unknown]
  - Injection site swelling [Unknown]
  - Injection site erythema [Unknown]
